FAERS Safety Report 17302614 (Version 1)
Quarter: 2020Q1

REPORT INFORMATION
  Report Type: Spontaneous
  Country: CN (occurrence: CN)
  Receive Date: 20200122
  Receipt Date: 20200122
  Transmission Date: 20200409
  Serious: Yes (Other)
  Sender: FDA-Public Use
  Company Number: CN-ANIPHARMA-2020-CN-000011

PATIENT
  Sex: Male
  Weight: 74 kg

DRUGS (1)
  1. CASODEX [Suspect]
     Active Substance: BICALUTAMIDE
     Indication: PROSTATE CANCER
     Dosage: 50 MG DAILY
     Route: 048

REACTIONS (6)
  - Gait disturbance [Unknown]
  - Bone pain [Unknown]
  - Mobility decreased [Unknown]
  - Back pain [Not Recovered/Not Resolved]
  - Metastasis [Unknown]
  - Pain in extremity [Recovering/Resolving]
